FAERS Safety Report 18517313 (Version 6)
Quarter: 2021Q4

REPORT INFORMATION
  Report Type: Report from Study
  Country: US (occurrence: US)
  Receive Date: 20201118
  Receipt Date: 20211018
  Transmission Date: 20220303
  Serious: Yes (Death, Hospitalization, Other)
  Sender: FDA-Public Use
  Company Number: US-TAKEDA-2020TUS049114

PATIENT
  Sex: Female
  Weight: 85.26 kg

DRUGS (24)
  1. HUMAN IMMUNOGLOBULIN G\HYALURONIDASE RECOMBINANT HUMAN [Suspect]
     Active Substance: HUMAN IMMUNOGLOBULIN G\HYALURONIDASE RECOMBINANT HUMAN
     Indication: Immunodeficiency common variable
     Dosage: 34 GRAM, Q3WEEKS
     Route: 058
     Dates: start: 20200512
  2. HUMAN IMMUNOGLOBULIN G\HYALURONIDASE RECOMBINANT HUMAN [Suspect]
     Active Substance: HUMAN IMMUNOGLOBULIN G\HYALURONIDASE RECOMBINANT HUMAN
     Dosage: 35 GRAM, Q3WEEKS
     Route: 058
     Dates: start: 20200512
  3. FLONASE [Concomitant]
     Active Substance: FLUTICASONE PROPIONATE
     Indication: Product used for unknown indication
     Route: 065
  4. ALBUTEROL SULFATE [Concomitant]
     Active Substance: ALBUTEROL SULFATE
     Indication: Product used for unknown indication
     Route: 065
  5. SYMBICORT [Concomitant]
     Active Substance: BUDESONIDE\FORMOTEROL FUMARATE DIHYDRATE
     Indication: Product used for unknown indication
     Route: 065
  6. VITAMIN B COMPLEX NOS [Concomitant]
     Active Substance: CYANOCOBALAMIN\PYRIDOXINE HYDROCHLORIDE\RIBOFLAVIN\SODIUM PANTOTHENATE\THIAMINE HYDROCHLORIDE\VITAMI
     Indication: Product used for unknown indication
     Route: 065
  7. MAGNESIUM [Concomitant]
     Active Substance: MAGNESIUM
     Indication: Product used for unknown indication
     Route: 065
  8. ACETAMINOPHEN [Concomitant]
     Active Substance: ACETAMINOPHEN
     Indication: Product used for unknown indication
     Route: 065
  9. DIPHENHYDRAMINE [Concomitant]
     Active Substance: DIPHENHYDRAMINE
     Indication: Product used for unknown indication
     Route: 065
  10. LIDOCAINE [Concomitant]
     Active Substance: LIDOCAINE
     Indication: Product used for unknown indication
     Route: 065
  11. SODIUM CHLORIDE [Concomitant]
     Active Substance: SODIUM CHLORIDE
     Indication: Product used for unknown indication
     Route: 065
  12. EPINEPHRINE [Concomitant]
     Active Substance: EPINEPHRINE
     Indication: Product used for unknown indication
     Route: 065
  13. ARAVA [Concomitant]
     Active Substance: LEFLUNOMIDE
     Indication: Product used for unknown indication
     Route: 065
  14. CELEBREX [Concomitant]
     Active Substance: CELECOXIB
     Indication: Product used for unknown indication
     Route: 065
  15. METOPROLOL [Concomitant]
     Active Substance: METOPROLOL
     Indication: Product used for unknown indication
     Route: 065
  16. VITAMIN C [Concomitant]
     Active Substance: ASCORBIC ACID
     Indication: Product used for unknown indication
     Route: 065
  17. XYZAL [Concomitant]
     Active Substance: LEVOCETIRIZINE DIHYDROCHLORIDE
     Indication: Product used for unknown indication
     Route: 065
  18. SINGULAIR [Concomitant]
     Active Substance: MONTELUKAST SODIUM
     Indication: Product used for unknown indication
     Route: 065
  19. FOSAMAX [Concomitant]
     Active Substance: ALENDRONATE SODIUM
     Indication: Product used for unknown indication
     Route: 065
  20. ASPIRIN [Concomitant]
     Active Substance: ASPIRIN
     Indication: Product used for unknown indication
     Route: 065
  21. PROBIOTIC ACIDOPHILUS [LACTOBACILLUS ACIDOPHILUS] [Concomitant]
     Indication: Product used for unknown indication
     Route: 065
  22. PRILOSEC [Concomitant]
     Active Substance: OMEPRAZOLE MAGNESIUM
     Indication: Product used for unknown indication
     Route: 065
  23. LEVOTHYROXINE [Concomitant]
     Active Substance: LEVOTHYROXINE
     Indication: Product used for unknown indication
     Route: 065
  24. OZEMPIC [Concomitant]
     Active Substance: SEMAGLUTIDE
     Indication: Blood glucose abnormal

REACTIONS (8)
  - Death [Fatal]
  - COVID-19 pneumonia [Unknown]
  - Herpes zoster [Unknown]
  - Blood glucose abnormal [Unknown]
  - Bronchitis [Unknown]
  - Infusion site erythema [Unknown]
  - Nausea [Unknown]
  - Infusion site pruritus [Unknown]
